FAERS Safety Report 10081841 (Version 2)
Quarter: 2014Q2

REPORT INFORMATION
  Report Type: Spontaneous
  Country: JP (occurrence: JP)
  Receive Date: 20140416
  Receipt Date: 20140617
  Transmission Date: 20141212
  Serious: Yes (Hospitalization, Other)
  Sender: FDA-Public Use
  Company Number: JP-PFIZER INC-2014104886

PATIENT
  Age: 78 Year
  Sex: Female
  Weight: 64 kg

DRUGS (7)
  1. OLMETEC [Suspect]
     Indication: HYPERTENSION
     Dosage: 20 MG, 1X/DAY
     Route: 048
     Dates: end: 20140227
  2. LIPITOR [Suspect]
     Indication: HYPERLIPIDAEMIA
     Dosage: 10 MG, 1X/DAY
     Route: 048
     Dates: end: 20140227
  3. RENIVACE [Suspect]
     Indication: HYPERTENSION
     Dosage: 5 MG, 1X/DAY
     Route: 048
     Dates: end: 20140227
  4. ARTIST [Concomitant]
     Dosage: UNK
     Dates: end: 20140227
  5. ATELEC [Concomitant]
     Dosage: UNK
     Dates: end: 20140227
  6. ADALAT CR [Concomitant]
     Dosage: UNK
     Dates: end: 20140227
  7. MERCAZOLE [Concomitant]
     Dosage: UNK
     Dates: end: 20140227

REACTIONS (3)
  - Angioedema [Recovered/Resolved]
  - Fall [Unknown]
  - Contusion [Unknown]
